FAERS Safety Report 4773439-2 (Version None)
Quarter: 2005Q3

REPORT INFORMATION
  Report Type: 
  Country: None (occurrence: None)
  Receive Date: 20050914
  Receipt Date: 20041108
  Transmission Date: 20060218
  Serious: Yes (Death)
  Sender: FDA-Public Use
  Company Number: 163-20785-04110196

PATIENT
  Age: 60 Year
  Sex: Male

DRUGS (10)
  1. THALOMID [Suspect]
     Indication: MALIGNANT MELANOMA
     Dosage: 200 MG, QD, ORAL;300 MG, QD, ORAL;400 MG,QD,ORAL;300 MG,ORAL;200 MG, QD,ORAL;100 MG,QD,ORAL
     Route: 048
     Dates: start: 20031104, end: 20031117
  2. THALOMID [Suspect]
     Indication: MALIGNANT MELANOMA
     Dosage: 200 MG, QD, ORAL;300 MG, QD, ORAL;400 MG,QD,ORAL;300 MG,ORAL;200 MG, QD,ORAL;100 MG,QD,ORAL
     Route: 048
     Dates: start: 20031118, end: 20031201
  3. THALOMID [Suspect]
     Indication: MALIGNANT MELANOMA
     Dosage: 200 MG, QD, ORAL;300 MG, QD, ORAL;400 MG,QD,ORAL;300 MG,ORAL;200 MG, QD,ORAL;100 MG,QD,ORAL
     Route: 048
     Dates: start: 20031202, end: 20031228
  4. THALOMID [Suspect]
     Indication: MALIGNANT MELANOMA
     Dosage: 200 MG, QD, ORAL;300 MG, QD, ORAL;400 MG,QD,ORAL;300 MG,ORAL;200 MG, QD,ORAL;100 MG,QD,ORAL
     Route: 048
     Dates: start: 20040105, end: 20040321
  5. THALOMID [Suspect]
     Indication: MALIGNANT MELANOMA
     Dosage: 200 MG, QD, ORAL;300 MG, QD, ORAL;400 MG,QD,ORAL;300 MG,ORAL;200 MG, QD,ORAL;100 MG,QD,ORAL
     Route: 048
     Dates: start: 20040329, end: 20040418
  6. THALOMID [Suspect]
     Indication: MALIGNANT MELANOMA
     Dosage: 200 MG, QD, ORAL;300 MG, QD, ORAL;400 MG,QD,ORAL;300 MG,ORAL;200 MG, QD,ORAL;100 MG,QD,ORAL
     Route: 048
     Dates: start: 20040427, end: 20040621
  7. TEMOZOLOMIDE (TEMOZOLOMIDE) [Suspect]
     Indication: MALIGNANT MELANOMA
     Dosage: 75 MG/M2 X 6 WKS., QD, ORAL
     Route: 048
     Dates: start: 20030901, end: 20031001
  8. TEMOZOLOMIDE (TEMOZOLOMIDE) [Suspect]
     Indication: MALIGNANT MELANOMA
     Dosage: 75 MG/M2 X 6 WKS., QD, ORAL
     Route: 048
     Dates: start: 20031104, end: 20040621
  9. LOMUSTINE (LOMUSTINE) [Suspect]
     Indication: MALIGNANT MELANOMA
     Dosage: 60MG/M2, ORAL ; 30MG/M2, ORAL
     Route: 048
     Dates: start: 20031104, end: 20031104
  10. LOMUSTINE (LOMUSTINE) [Suspect]
     Indication: MALIGNANT MELANOMA
     Dosage: 60MG/M2, ORAL ; 30MG/M2, ORAL
     Route: 048
     Dates: start: 20031202, end: 20031202

REACTIONS (1)
  - DISEASE PROGRESSION [None]
